FAERS Safety Report 8527825 (Version 8)
Quarter: 2012Q4

REPORT INFORMATION
  Report Type: 
  Country: US (occurrence: US)
  Receive Date: 20120424
  Receipt Date: 20121213
  Transmission Date: 20130627
  Serious: Yes (Death, Hospitalization)
  Sender: FDA-Public Use
  Company Number: US-GLAXOSMITHKLINE-A0974650A

PATIENT
  Age: 34 Year
  Sex: Female
  Weight: 145.1 kg

DRUGS (24)
  1. FLOLAN [Suspect]
     Indication: PULMONARY ARTERIAL HYPERTENSION
     Dosage: 9.25NGKM Continuous
     Route: 042
     Dates: start: 20120409
  2. CHLORAPREP [Suspect]
  3. PROPYLENE GLYCOL [Suspect]
  4. PROTONIX [Concomitant]
     Dosage: 40MGD per day
  5. LASIX [Concomitant]
     Dosage: 40MGD per day
  6. COUMADIN [Concomitant]
     Dosage: 5MGD per day
  7. NEURONTIN [Concomitant]
     Dosage: 100MG As required
  8. ZOFRAN [Concomitant]
     Dosage: 4MG As required
  9. ASPIRIN [Concomitant]
     Dosage: 325MGD per day
  10. IMODIUM [Concomitant]
     Dosage: 2MG As required
  11. PEPTOBISMOL [Concomitant]
     Dosage: 30ML As required
     Route: 048
  12. ACETAMINOPHEN [Concomitant]
     Dosage: 650MG per day
  13. REGLAN [Concomitant]
     Dosage: 5MGD per day
  14. CYMBALTA [Concomitant]
     Dosage: 60MGD per day
  15. HUMALOG [Concomitant]
     Route: 058
  16. SYNTHROID [Concomitant]
     Dosage: 50MCG per day
  17. LANTUS [Concomitant]
     Dosage: 25UNIT At night
     Route: 058
  18. SYMBICORT [Concomitant]
     Dosage: 2PUFF Twice per day
     Route: 055
  19. LEXAPRO [Concomitant]
     Dosage: 20MGD per day
  20. MULTIVITAMIN [Concomitant]
     Dosage: 1TAB Per day
     Route: 048
  21. FISH OIL [Concomitant]
     Dosage: 1000MGD per day
  22. POTASSIUM [Concomitant]
  23. OXYCODONE [Concomitant]
  24. KLONOPIN [Concomitant]

REACTIONS (25)
  - Death [Fatal]
  - Intestinal obstruction [Unknown]
  - Device related infection [Unknown]
  - Catheter site inflammation [Unknown]
  - Catheter site rash [Unknown]
  - Infusion site pain [Unknown]
  - Purulent discharge [Unknown]
  - Catheter site swelling [Unknown]
  - Medical device complication [Unknown]
  - Chest discomfort [Unknown]
  - Oxygen saturation decreased [Unknown]
  - Pain in extremity [Unknown]
  - Restless legs syndrome [Unknown]
  - Nausea [Recovered/Resolved]
  - Infusion site extravasation [Unknown]
  - Catheter site discharge [Unknown]
  - Catheter site erythema [Unknown]
  - Catheter site pain [Unknown]
  - Abdominal pain [Unknown]
  - Pain [Recovered/Resolved]
  - Malaise [Recovered/Resolved]
  - Flushing [Recovered/Resolved]
  - Dizziness [Recovered/Resolved]
  - Therapy cessation [Unknown]
  - Dyspnoea [Unknown]
